FAERS Safety Report 21382651 (Version 1)
Quarter: 2022Q3

REPORT INFORMATION
  Report Type: Other
  Country: CN (occurrence: None)
  Receive Date: 20220927
  Receipt Date: 20220927
  Transmission Date: 20221027
  Serious: Yes (Other)
  Sender: FDA-Public Use
  Company Number: CN-ROCHE-3184222

PATIENT
  Age: 34 Year
  Sex: Female

DRUGS (6)
  1. BEVACIZUMAB [Suspect]
     Active Substance: BEVACIZUMAB
     Indication: Peritoneal neoplasm
     Dosage: TWO CYCLES OF CHEMOTHERAPY
     Route: 042
  2. BLEOMYCIN A6 HYDROCHLORIDE [Suspect]
     Active Substance: BLEOMYCIN A6 HYDROCHLORIDE
     Indication: Peritoneal neoplasm
     Dosage: 5~6 MG/M2
     Route: 065
  3. ETOPOSIDE [Suspect]
     Active Substance: ETOPOSIDE
     Indication: Peritoneal neoplasm
     Dosage: 5 CONSECUTIVE DAYS
     Route: 042
  4. CISPLATIN [Suspect]
     Active Substance: CISPLATIN
     Indication: Peritoneal neoplasm
     Dosage: 5 CONSECUTIVE DAYS
     Route: 042
  5. DOCETAXEL [Suspect]
     Active Substance: DOCETAXEL
     Indication: Peritoneal neoplasm
     Route: 042
  6. CARBOPLATIN [Suspect]
     Active Substance: CARBOPLATIN
     Indication: Peritoneal neoplasm
     Route: 042

REACTIONS (1)
  - Myelosuppression [Unknown]
